FAERS Safety Report 26196297 (Version 1)
Quarter: 2025Q4

REPORT INFORMATION
  Report Type: Spontaneous
  Country: JP (occurrence: JP)
  Receive Date: 20251224
  Receipt Date: 20251224
  Transmission Date: 20260117
  Serious: Yes (Hospitalization)
  Sender: MERCK SHARP & DOHME LLC
  Company Number: JP-009507513-2362487

PATIENT
  Age: 59 Year
  Sex: Male
  Weight: 90 kg

DRUGS (8)
  1. ROCURONIUM [Suspect]
     Active Substance: ROCURONIUM BROMIDE
     Indication: General anaesthesia
     Dosage: 70 MG; UNKNOWN DOSE ADDITIONALLY ADMINISTERED TO MAINTAIN TRAIN-OF-FOUR (TOF) COUNT OF 1
  2. ROCURONIUM [Suspect]
     Active Substance: ROCURONIUM BROMIDE
     Indication: General anaesthesia
     Dosage: TIME INTERVAL: TOTAL
  3. REMIMAZOLAM [Suspect]
     Active Substance: REMIMAZOLAM
     Indication: General anaesthesia
     Dosage: TIME INTERVAL: TOTAL
  4. FENTANYL [Suspect]
     Active Substance: FENTANYL
     Indication: General anaesthesia
     Dosage: TIME INTERVAL: TOTAL
  5. SUGAMMADEX [Concomitant]
     Active Substance: SUGAMMADEX
     Indication: Neuromuscular blockade reversal
     Dosage: TIME INTERVAL: TOTAL
  6. LIDOCAINE [Concomitant]
     Active Substance: LIDOCAINE
     Indication: Local anaesthesia
     Dosage: 10 ML OF 1%
     Route: 043
  7. SEVOFLURANE [Concomitant]
     Active Substance: SEVOFLURANE
     Indication: Maintenance of anaesthesia
     Dosage: 1.5-2%
  8. REMIFENTANIL [Concomitant]
     Active Substance: REMIFENTANIL
     Indication: Maintenance of anaesthesia
     Dosage: 0.06-0.1 MCG/KG/1 MIN-1.

REACTIONS (5)
  - Hypercapnia [Unknown]
  - Hypotonia [Recovered/Resolved]
  - Overdose [Unknown]
  - Upper airway obstruction [Unknown]
  - Hypoxia [Unknown]
